FAERS Safety Report 22843729 (Version 2)
Quarter: 2023Q4

REPORT INFORMATION
  Report Type: Report from Study
  Country: US (occurrence: US)
  Receive Date: 20230821
  Receipt Date: 20231122
  Transmission Date: 20240110
  Serious: Yes (Hospitalization)
  Sender: FDA-Public Use
  Company Number: US-ARGENX-2023-ARGX-US001568

PATIENT

DRUGS (2)
  1. VYVGART [Suspect]
     Active Substance: EFGARTIGIMOD ALFA-FCAB
     Indication: Myasthenia gravis
     Dosage: 10 MG/KG
     Route: 042
  2. VYVGART [Suspect]
     Active Substance: EFGARTIGIMOD ALFA-FCAB
     Dosage: 10 UNK
     Route: 042
     Dates: end: 20231027

REACTIONS (6)
  - Condition aggravated [Unknown]
  - Bradycardia [Unknown]
  - Peripheral swelling [Unknown]
  - Fatigue [Unknown]
  - Haematuria [Unknown]
  - Obstructive sleep apnoea syndrome [Unknown]
